FAERS Safety Report 17060519 (Version 2)
Quarter: 2020Q1

REPORT INFORMATION
  Report Type: Spontaneous
  Country: JP (occurrence: JP)
  Receive Date: 20191121
  Receipt Date: 20200204
  Transmission Date: 20200409
  Serious: Yes (Hospitalization, Other)
  Sender: FDA-Public Use
  Company Number: JP-BAYER-2019-204606

PATIENT
  Age: 62 Year
  Sex: Male
  Weight: 60.4 kg

DRUGS (6)
  1. STIVARGA [Suspect]
     Active Substance: REGORAFENIB
     Indication: RECTAL CANCER RECURRENT
     Dosage: 3 CONSECUTIVE WEEKS 1 WEEK OFF
     Route: 048
     Dates: start: 20191101, end: 20191107
  2. CYMBALTA [Concomitant]
     Active Substance: DULOXETINE HYDROCHLORIDE
     Dosage: DAILY DOSE 20 MG
     Route: 048
     Dates: start: 20160616, end: 20200128
  3. OXYCONTIN [Concomitant]
     Active Substance: OXYCODONE HYDROCHLORIDE
     Indication: RECTAL CANCER RECURRENT
     Dosage: UNK
     Route: 048
  4. CANDESARTAN. [Concomitant]
     Active Substance: CANDESARTAN
     Indication: CARDIOVASCULAR EVENT PROPHYLAXIS
     Dosage: DAILY DOSE 8 MG
     Route: 048
     Dates: start: 20161124, end: 20200128
  5. CANDESARTAN. [Concomitant]
     Active Substance: CANDESARTAN
     Indication: CARDIOVASCULAR EVENT PROPHYLAXIS
     Dosage: UNK
  6. OXYCONTIN [Concomitant]
     Active Substance: OXYCODONE HYDROCHLORIDE
     Indication: RECTAL CANCER RECURRENT
     Dosage: DAILY DOSE 10 MG
     Route: 048
     Dates: start: 20181002, end: 20200128

REACTIONS (8)
  - Fibrin D dimer increased [Recovered/Resolved]
  - Disseminated intravascular coagulation [Recovered/Resolved]
  - C-reactive protein increased [Recovering/Resolving]
  - Delirium [Recovered/Resolved]
  - Platelet count decreased [Recovered/Resolved]
  - Pyrexia [Recovered/Resolved]
  - Headache [None]
  - Tremor [Recovered/Resolved]

NARRATIVE: CASE EVENT DATE: 20191103
